FAERS Safety Report 18699418 (Version 1)
Quarter: 2021Q1

REPORT INFORMATION
  Report Type: Spontaneous
  Country: RU (occurrence: RU)
  Receive Date: 20210105
  Receipt Date: 20210105
  Transmission Date: 20210419
  Serious: Yes (Other)
  Sender: FDA-Public Use
  Company Number: RU-DRREDDYS-RUS/RUS/20/0130674

PATIENT
  Age: 46 Year
  Sex: Male

DRUGS (1)
  1. OMEZ [Suspect]
     Active Substance: OMEPRAZOLE
     Indication: GASTRIC ULCER
     Route: 048

REACTIONS (3)
  - Blood pressure decreased [Unknown]
  - Vertigo [Unknown]
  - Headache [Unknown]
